FAERS Safety Report 10596493 (Version 4)
Quarter: 2014Q4

REPORT INFORMATION
  Report Type: Spontaneous
  Country: AU (occurrence: AU)
  Receive Date: 20141120
  Receipt Date: 20141216
  Transmission Date: 20150529
  Serious: Yes (Other)
  Sender: FDA-Public Use
  Company Number: AU-B.I. PHARMACEUTICALS,INC./RIDGEFIELD-2014-BI-52207AU

PATIENT
  Age: 78 Year
  Sex: Female

DRUGS (1)
  1. GILOTRIF [Suspect]
     Active Substance: AFATINIB
     Indication: NON-SMALL CELL LUNG CANCER
     Dosage: DOSE PER APPLICATION AND DAILY DOSE: 40MG AND 30MG ON ALTERNATE DAYS
     Route: 048
     Dates: start: 20120710

REACTIONS (6)
  - Constipation [Recovered/Resolved]
  - Growth of eyelashes [Not Recovered/Not Resolved]
  - Nail infection [Not Recovered/Not Resolved]
  - Skin cancer [Not Recovered/Not Resolved]
  - Nail infection [Not Recovered/Not Resolved]
  - Diarrhoea [Recovered/Resolved]

NARRATIVE: CASE EVENT DATE: 201207
